FAERS Safety Report 5080227-9 (Version None)
Quarter: 2006Q3

REPORT INFORMATION
  Report Type: 
  Country: None (occurrence: None)
  Receive Date: 20060815
  Receipt Date: 20060809
  Transmission Date: 20061208
  Serious: Yes (Hospitalization)
  Sender: FDA-Public Use
  Company Number: JP-AVENTIS-200612513JP

PATIENT
  Age: 55 Year
  Sex: Female

DRUGS (2)
  1. TAXOTERE [Suspect]
     Indication: OVARIAN CANCER
     Route: 041
     Dates: start: 20060713, end: 20060713
  2. CARBOPLATIN [Concomitant]
     Indication: OVARIAN CANCER
     Dates: start: 20060713, end: 20060713

REACTIONS (7)
  - ANOREXIA [None]
  - FALL [None]
  - HYPOCALCAEMIA [None]
  - HYPOMAGNESAEMIA [None]
  - LOSS OF CONSCIOUSNESS [None]
  - MALIGNANT NEOPLASM PROGRESSION [None]
  - TUMOUR MARKER INCREASED [None]
